FAERS Safety Report 6020720-5 (Version None)
Quarter: 2008Q4

REPORT INFORMATION
  Report Type: 
  Country: None (occurrence: None)
  Receive Date: 20081223
  Receipt Date: 20081223
  Transmission Date: 20090506
  Serious: Yes (Hospitalization)
  Sender: FDA-Public Use
  Company Number: None

PATIENT
  Age: 61 Year
  Sex: Female

DRUGS (3)
  1. GEMFIBROZIL [Suspect]
     Indication: BLOOD TRIGLYCERIDES INCREASED
     Dosage: ORALLY, 1 TABLET TWICE A DAY
     Route: 048
     Dates: end: 20080430
  2. LISINOPRIL [Concomitant]
  3. BISOPROLOL FUMARATE [Concomitant]

REACTIONS (2)
  - NEUROPATHY PERIPHERAL [None]
  - PYREXIA [None]
